FAERS Safety Report 8996582 (Version 2)
Quarter: 2013Q1

REPORT INFORMATION
  Report Type: Spontaneous
  Country: US (occurrence: US)
  Receive Date: 20130104
  Receipt Date: 20130214
  Transmission Date: 20140127
  Serious: No
  Sender: FDA-Public Use
  Company Number: US-PFIZER INC-2013000425

PATIENT
  Age: 25 Year
  Sex: Male
  Weight: 46.71 kg

DRUGS (1)
  1. ADVIL [Suspect]
     Indication: HEADACHE
     Dosage: UNK
     Dates: start: 20121231

REACTIONS (3)
  - Malaise [Unknown]
  - Headache [Unknown]
  - Nausea [Unknown]
